FAERS Safety Report 7233490-X (Version None)
Quarter: 2011Q1

REPORT INFORMATION
  Report Type: 
  Country: None (occurrence: None)
  Receive Date: 20110119
  Receipt Date: 20110106
  Transmission Date: 20110831
  Serious: Yes (Hospitalization, Other)
  Sender: FDA-Public Use
  Company Number: US-ELI_LILLY_AND_COMPANY-US201008002721

PATIENT
  Age: 36 Year
  Sex: Female

DRUGS (3)
  1. OXYCODONE [Concomitant]
  2. LYRICA [Concomitant]
  3. CYMBALTA [Suspect]
     Indication: FIBROMYALGIA
     Dosage: 60 MG, UNK

REACTIONS (14)
  - DIARRHOEA [None]
  - GASTROINTESTINAL DISORDER [None]
  - FATIGUE [None]
  - NAUSEA [None]
  - MUSCLE SPASMS [None]
  - INSOMNIA [None]
  - HEPATIC CYST [None]
  - ABDOMINAL PAIN UPPER [None]
  - ADVERSE EVENT [None]
  - HEPATIC PAIN [None]
  - DRUG INEFFECTIVE [None]
  - DRUG WITHDRAWAL SYNDROME [None]
  - HEADACHE [None]
  - DIZZINESS [None]
